FAERS Safety Report 16260781 (Version 1)
Quarter: 2019Q2

REPORT INFORMATION
  Report Type: Spontaneous
  Country: ES (occurrence: ES)
  Receive Date: 20190501
  Receipt Date: 20190501
  Transmission Date: 20190711
  Serious: Yes (Hospitalization)
  Sender: FDA-Public Use
  Company Number: ES-PFIZER INC-2019180505

PATIENT
  Age: 76 Year
  Sex: Male

DRUGS (2)
  1. SEGURIL [Interacting]
     Active Substance: FUROSEMIDE
     Dosage: UNK, 1-0-0
     Route: 048
     Dates: start: 20180414, end: 20180417
  2. ALDACTONE [Suspect]
     Active Substance: SPIRONOLACTONE
     Dosage: 100 MG, 1X/DAY, 1-0-0
     Route: 048
     Dates: start: 20180414, end: 20180417

REACTIONS (2)
  - Drug interaction [Unknown]
  - Hyponatraemia [Recovered/Resolved]

NARRATIVE: CASE EVENT DATE: 20180417
